FAERS Safety Report 7744177-9 (Version None)
Quarter: 2011Q3

REPORT INFORMATION
  Report Type: 
  Country: None (occurrence: None)
  Receive Date: 20110912
  Receipt Date: 20110902
  Transmission Date: 20111222
  Serious: No
  Sender: FDA-Public Use
  Company Number: US-PFIZER INC-2011208149

PATIENT

DRUGS (2)
  1. FLAGYL [Suspect]
     Dosage: UNK
  2. WARFARIN SODIUM [Suspect]
     Dosage: UNK

REACTIONS (1)
  - INTERNATIONAL NORMALISED RATIO INCREASED [None]
